FAERS Safety Report 21065674 (Version 1)
Quarter: 2022Q3

REPORT INFORMATION
  Report Type: Spontaneous
  Country: AU (occurrence: AU)
  Receive Date: 20220711
  Receipt Date: 20220711
  Transmission Date: 20221026
  Serious: Yes (Other)
  Sender: FDA-Public Use
  Company Number: AU-TEVA-2022-AU-2054173

PATIENT
  Age: 29 Year
  Sex: Male

DRUGS (4)
  1. QUETIAPINE [Suspect]
     Active Substance: QUETIAPINE
     Indication: Antipsychotic therapy
     Dosage: 1000 MILLIGRAM DAILY; IN DIVIDED DOSES
     Route: 065
  2. VALPROATE SODIUM [Suspect]
     Active Substance: VALPROATE SODIUM
     Indication: Antipsychotic therapy
     Dosage: 2 GRAM DAILY;
     Route: 065
  3. PALIPERIDONE [Suspect]
     Active Substance: PALIPERIDONE
     Indication: Antipsychotic therapy
     Dosage: 12MG NOCTE
     Route: 065
  4. PALIPERIDONE [Suspect]
     Active Substance: PALIPERIDONE
     Dosage: 6MG NOCTE
     Route: 065
     Dates: start: 20220629

REACTIONS (2)
  - Drug resistance [Unknown]
  - Neutrophil count decreased [Unknown]
